FAERS Safety Report 9239075 (Version 1)
Quarter: 2013Q2

REPORT INFORMATION
  Report Type: Spontaneous
  Country: US (occurrence: US)
  Receive Date: 20130418
  Receipt Date: 20130418
  Transmission Date: 20140414
  Serious: No
  Sender: FDA-Public Use
  Company Number: US-009507513-1304USA007698

PATIENT
  Age: 54 Year
  Sex: Male

DRUGS (6)
  1. VICTRELIS [Suspect]
     Indication: HEPATITIS C
     Dosage: 800 MG, TID
     Route: 048
     Dates: start: 20130404
  2. REBETOL [Suspect]
     Dosage: UNK
     Route: 048
     Dates: start: 20130404
  3. PEGASYS [Suspect]
     Dosage: UNK
     Dates: start: 20130404
  4. LOTRIL (ENALAPRIL MALEATE) [Concomitant]
  5. FLOMAX (TAMSULOSIN HYDROCHLORIDE) [Concomitant]
  6. TRAMADOL HYDROCHLORIDE [Concomitant]

REACTIONS (1)
  - Fatigue [Unknown]
